FAERS Safety Report 5655164-9 (Version None)
Quarter: 2008Q1

REPORT INFORMATION
  Report Type: 
  Country: None (occurrence: None)
  Receive Date: 20080307
  Receipt Date: 20080225
  Transmission Date: 20080703
  Serious: Yes (Other)
  Sender: FDA-Public Use
  Company Number: US-AMGEN-STX266966

PATIENT
  Sex: Female

DRUGS (2)
  1. ENBREL [Suspect]
     Indication: PSORIATIC ARTHROPATHY
     Route: 058
     Dates: start: 19990601
  2. SULFASALAZINE [Concomitant]
     Route: 065
     Dates: start: 19870101

REACTIONS (6)
  - BREAST CANCER [None]
  - BREAST MASS [None]
  - DEPRESSION [None]
  - DUPUYTREN'S CONTRACTURE [None]
  - MACULAR DEGENERATION [None]
  - SKIN NODULE [None]
